FAERS Safety Report 5853856-X (Version None)
Quarter: 2008Q3

REPORT INFORMATION
  Report Type: 
  Country: None (occurrence: None)
  Receive Date: 20080822
  Receipt Date: 20080815
  Transmission Date: 20090109
  Serious: Yes (Death, Hospitalization)
  Sender: FDA-Public Use
  Company Number: US-KINGPHARMUSA00001-K200800967

PATIENT

DRUGS (8)
  1. ALTACE [Suspect]
     Dosage: 5 MG, QD
     Route: 048
     Dates: start: 20080204, end: 20080331
  2. HYDROCHLOROTHIAZIDE [Suspect]
     Dosage: 12.5 MG, QD
     Route: 048
     Dates: start: 20080204, end: 20080331
  3. SECTRAL [Suspect]
     Dosage: 1 DF, BID
     Route: 048
     Dates: start: 20080204, end: 20080408
  4. KENZEN [Suspect]
     Dosage: 16 MG, QD
     Route: 048
     Dates: start: 20080204, end: 20080331
  5. INEXIUM                            /01479302/ [Suspect]
     Indication: ULCER
     Dosage: 40 MG, QD
     Dates: start: 20080204, end: 20080301
  6. IXEL                               /01054401/ [Suspect]
     Indication: DEPRESSION
     Dosage: 50 MG, BID
     Route: 048
     Dates: end: 20080331
  7. LOXEN [Suspect]
     Dosage: 100 MG, QD
     Route: 048
     Dates: start: 20080204, end: 20080331
  8. VITAMIN B1, B6 + B12 [Concomitant]
     Dosage: UNK, UNK
     Dates: end: 20080331

REACTIONS (15)
  - ANURIA [None]
  - CHOLANGITIS [None]
  - CHOLESTASIS [None]
  - COAGULOPATHY [None]
  - CONFUSIONAL STATE [None]
  - HAEMOTHORAX [None]
  - HEPATIC FUNCTION ABNORMAL [None]
  - HEPATITIS TOXIC [None]
  - JAUNDICE [None]
  - NERVOUS SYSTEM DISORDER [None]
  - PROTHROMBIN TIME SHORTENED [None]
  - RENAL FAILURE ACUTE [None]
  - SEPTIC SHOCK [None]
  - SOMNOLENCE [None]
  - SUPERINFECTION [None]
